FAERS Safety Report 15578005 (Version 2)
Quarter: 2019Q4

REPORT INFORMATION
  Report Type: Spontaneous
  Country: US (occurrence: US)
  Receive Date: 20181102
  Receipt Date: 20191104
  Transmission Date: 20200122
  Serious: No
  Sender: FDA-Public Use
  Company Number: US-PFIZER INC-2018384840

PATIENT
  Age: 2 Year
  Sex: Female

DRUGS (5)
  1. GENOTROPIN [Suspect]
     Active Substance: SOMATROPIN
     Dosage: 0.3 MG/ML, ALTERNATE DAY [0.3 MG/ML ALTERNATE TO 0.4 MG/ML ONCE A DAY]
     Dates: start: 201809, end: 20181225
  2. GENOTROPIN [Suspect]
     Active Substance: SOMATROPIN
     Dosage: 0.4 MG/ML, ALTERNATE DAY [0.3 MG/ML ALTERNATE TO 0.4 MG/ML ONCE A DAY]
     Dates: start: 201809, end: 20181225
  3. GENOTROPIN [Suspect]
     Active Substance: SOMATROPIN
     Dosage: 1.5 MG/ML, 1X/DAY
     Dates: start: 20190410
  4. GENOTROPIN [Suspect]
     Active Substance: SOMATROPIN
     Indication: BODY HEIGHT BELOW NORMAL
     Dosage: 0.35 MG, DAILY
     Route: 058
  5. GENOTROPIN [Suspect]
     Active Substance: SOMATROPIN
     Dosage: 0.4 MG/ML, 1X/DAY
     Dates: start: 20181226, end: 20190409

REACTIONS (2)
  - Diarrhoea [Unknown]
  - Product prescribing error [Unknown]
